FAERS Safety Report 8434606-X (Version None)
Quarter: 2012Q2

REPORT INFORMATION
  Report Type: 
  Country: None (occurrence: None)
  Receive Date: 20120614
  Receipt Date: 20120604
  Transmission Date: 20120825
  Serious: No
  Sender: FDA-Public Use
  Company Number: US-BIOGENIDEC-2012BI019697

PATIENT
  Age: 38 Year
  Sex: Female

DRUGS (1)
  1. AVONEX [Suspect]
     Indication: MULTIPLE SCLEROSIS
     Route: 030
     Dates: start: 20040101

REACTIONS (6)
  - MULTIPLE SCLEROSIS RELAPSE [None]
  - DIPLOPIA [None]
  - HYPERSENSITIVITY [None]
  - FALL [None]
  - MULTIPLE SCLEROSIS [None]
  - VISION BLURRED [None]
